FAERS Safety Report 10548962 (Version 1)
Quarter: 2014Q4

REPORT INFORMATION
  Report Type: Report from Study
  Country: US (occurrence: US)
  Receive Date: 20141028
  Receipt Date: 20141028
  Transmission Date: 20150529
  Serious: Yes (Other)
  Sender: FDA-Public Use
  Company Number: US-MYLANLABS-2014M1008647

PATIENT

DRUGS (22)
  1. ZICONOTIDE [Suspect]
     Active Substance: ZICONOTIDE
     Dosage: 0.25 MICROG/DAY BOLUS
     Route: 065
  2. CLONAZEPAM. [Concomitant]
     Active Substance: CLONAZEPAM
     Indication: PAIN
     Route: 048
  3. FROVATRIPTAN [Concomitant]
     Active Substance: FROVATRIPTAN
     Indication: PAIN
     Route: 048
  4. PROMETHAZINE [Concomitant]
     Active Substance: PROMETHAZINE\PROMETHAZINE HYDROCHLORIDE
     Indication: PAIN
     Route: 048
  5. HYDROMORPHONE [Suspect]
     Active Substance: HYDROMORPHONE
     Dosage: 17 MG, QD
     Route: 037
  6. ALPRAZOLAM. [Concomitant]
     Active Substance: ALPRAZOLAM
     Indication: PAIN
     Route: 048
  7. ELETRIPTAN [Concomitant]
     Active Substance: ELETRIPTAN
     Indication: PAIN
     Route: 048
  8. DIAZEPAM. [Concomitant]
     Active Substance: DIAZEPAM
     Indication: PAIN
     Route: 048
  9. HYDROMORPHONE [Suspect]
     Active Substance: HYDROMORPHONE
     Indication: PAIN
     Route: 048
  10. ZICONOTIDE [Suspect]
     Active Substance: ZICONOTIDE
     Indication: PAIN
     Dosage: 1.2 ?G, QD
     Route: 037
  11. BACLOFEN. [Concomitant]
     Active Substance: BACLOFEN
     Indication: PAIN
     Route: 048
  12. ESZOPICLONE. [Concomitant]
     Active Substance: ESZOPICLONE
     Indication: PAIN
     Route: 048
  13. CLONIDINE. [Concomitant]
     Active Substance: CLONIDINE
     Indication: PAIN
     Dosage: 133 ?G, QD
     Route: 037
  14. BACLOFEN. [Concomitant]
     Active Substance: BACLOFEN
     Dosage: 400 ?G, QD
     Route: 037
  15. SUFENTANIL [Suspect]
     Active Substance: SUFENTANIL
     Indication: PAIN
     Dosage: 7 ?G, QD
     Route: 037
  16. ZICONOTIDE [Suspect]
     Active Substance: ZICONOTIDE
     Dosage: 2.2 ?G, QD
     Route: 037
  17. ZOLPIDEM [Concomitant]
     Active Substance: ZOLPIDEM\ZOLPIDEM TARTRATE
     Indication: PAIN
     Route: 048
  18. CELECOXIB. [Concomitant]
     Active Substance: CELECOXIB
     Indication: PAIN
     Route: 048
  19. A.C.CAP [Concomitant]
     Indication: PAIN
     Route: 048
  20. BUPIVACAINE [Concomitant]
     Active Substance: BUPIVACAINE
     Indication: PAIN
     Dosage: 5.3 MG, QD
     Route: 037
  21. FENTANYL. [Suspect]
     Active Substance: FENTANYL
     Indication: PAIN
     Route: 062
  22. OXYCODONE [Suspect]
     Active Substance: OXYCODONE
     Indication: PAIN
     Route: 048

REACTIONS (9)
  - Impaired gastric emptying [Unknown]
  - Confusional state [Recovered/Resolved]
  - Urinary retention [Recovered/Resolved]
  - Syncope [Recovered/Resolved]
  - Nausea [Recovered/Resolved]
  - Vomiting [Recovered/Resolved]
  - Hyperaesthesia [Recovering/Resolving]
  - Mental status changes [Recovered/Resolved]
  - Insomnia [Unknown]
